FAERS Safety Report 23851908 (Version 1)
Quarter: 2024Q2

REPORT INFORMATION
  Report Type: Spontaneous
  Country: US (occurrence: US)
  Receive Date: 20240514
  Receipt Date: 20240514
  Transmission Date: 20240716
  Serious: No
  Sender: FDA-Public Use
  Company Number: US-TEVA-VS-3190613

PATIENT
  Sex: Male

DRUGS (2)
  1. CLONIDINE [Suspect]
     Active Substance: CLONIDINE
     Indication: Product used for unknown indication
     Dosage: STRENGTH: 0.3 MG / DAY
     Route: 062
  2. CLONIDINE [Suspect]
     Active Substance: CLONIDINE
     Dosage: STRENGTH: 0.3 MG / DAY
     Route: 062

REACTIONS (2)
  - Eczema [Unknown]
  - Product adhesion issue [Unknown]
